FAERS Safety Report 6467605-8 (Version None)
Quarter: 2009Q4

REPORT INFORMATION
  Report Type: 
  Country: None (occurrence: None)
  Receive Date: 20091202
  Receipt Date: 20091126
  Transmission Date: 20100525
  Serious: Yes (Hospitalization)
  Sender: FDA-Public Use
  Company Number: SE-ABBOTT-09P-150-0600681-00

PATIENT
  Sex: Female

DRUGS (11)
  1. SEVOFLURANE [Suspect]
     Indication: ANAESTHESIA
     Dates: start: 20090902, end: 20090902
  2. TRADIL [Suspect]
     Indication: DRUG USE FOR UNKNOWN INDICATION
     Route: 048
     Dates: start: 20090902, end: 20090903
  3. PROPOFOL [Suspect]
     Indication: DRUG USE FOR UNKNOWN INDICATION
     Route: 042
     Dates: start: 20090902, end: 20090902
  4. ACETAMINOPHEN W/ CODEINE [Suspect]
     Indication: DRUG USE FOR UNKNOWN INDICATION
     Dosage: 500/300MG
     Route: 048
     Dates: start: 20090409, end: 20090409
  5. NAPROXEN [Suspect]
     Indication: HEMICEPHALALGIA
     Dosage: 3.7 GRAM MONTHLY
     Route: 048
     Dates: start: 19990101, end: 20090918
  6. FENTANYL-100 [Suspect]
     Indication: DRUG USE FOR UNKNOWN INDICATION
     Dosage: UNIT DOSE IS 50 UG/ML. TOTAL OF 0.12MG
     Route: 042
     Dates: start: 20090902, end: 20090902
  7. ALVEDON FORTE [Suspect]
     Indication: HEMICEPHALALGIA
     Route: 048
     Dates: start: 19990101, end: 20090918
  8. OXYGEN [Concomitant]
     Indication: ANAESTHESIA
  9. NITROUS OXIDE [Concomitant]
     Indication: ANAESTHESIA
     Dates: start: 20090902, end: 20090902
  10. ENALAPRIL MALEATE [Concomitant]
     Indication: DRUG USE FOR UNKNOWN INDICATION
  11. ALVEDON [Concomitant]
     Indication: DRUG USE FOR UNKNOWN INDICATION

REACTIONS (3)
  - CHEST PAIN [None]
  - HEPATOTOXICITY [None]
  - MUSCULOSKELETAL PAIN [None]
